FAERS Safety Report 16232275 (Version 2)
Quarter: 2019Q2

REPORT INFORMATION
  Report Type: Spontaneous
  Country: CN (occurrence: CN)
  Receive Date: 20190424
  Receipt Date: 20190618
  Transmission Date: 20190711
  Serious: Yes (Other)
  Sender: FDA-Public Use
  Company Number: CN-ROCHE-2306057

PATIENT
  Age: 36 Year
  Sex: Female

DRUGS (2)
  1. LUCENTIS [Suspect]
     Active Substance: RANIBIZUMAB
     Indication: DIABETIC RETINOPATHY
     Dosage: 0.05 ML, UNK
     Route: 065
     Dates: start: 20170419
  2. LUCENTIS [Suspect]
     Active Substance: RANIBIZUMAB
     Indication: DIABETIC RETINAL OEDEMA

REACTIONS (5)
  - Macular fibrosis [Unknown]
  - Haemangioma [Unknown]
  - Eye disorder [Unknown]
  - Vitreous opacities [Unknown]
  - Intraocular pressure increased [Recovering/Resolving]
